FAERS Safety Report 9351477 (Version 1)
Quarter: 2013Q2

REPORT INFORMATION
  Report Type: Report from Study
  Country: JP (occurrence: JP)
  Receive Date: 20130617
  Receipt Date: 20130617
  Transmission Date: 20140414
  Serious: Yes (Death, Life-Threatening, Hospitalization, Other)
  Sender: FDA-Public Use
  Company Number: JP-GENZYME-THYM-1003858

PATIENT
  Age: 38 Year
  Sex: Male
  Weight: 74 kg

DRUGS (11)
  1. THYMOGLOBULIN [Suspect]
     Indication: BONE MARROW CONDITIONING REGIMEN
     Dosage: 180 MG, QD, OVER 12 HOURS
     Route: 065
     Dates: start: 20120521, end: 20120521
  2. ITRIZOLE [Concomitant]
     Indication: PROPHYLAXIS
     Dosage: UNK
     Route: 065
     Dates: start: 20120427, end: 20120619
  3. TAKEPRON [Concomitant]
     Indication: PROPHYLAXIS
     Dosage: UNK
     Route: 065
     Dates: start: 20120427, end: 20120703
  4. PROMAC [Concomitant]
     Indication: PROPHYLAXIS
     Dosage: UNK
     Route: 065
     Dates: start: 20120427, end: 20120619
  5. BAKTAR [Concomitant]
     Indication: PROPHYLAXIS
     Dosage: UNK
     Route: 065
     Dates: start: 20120427, end: 20120802
  6. ACICLOVIN [Concomitant]
     Indication: PROPHYLAXIS
     Dosage: UNK
     Route: 065
     Dates: start: 20120527, end: 20120619
  7. VFEND [Concomitant]
     Indication: STREPTOCOCCAL BACTERAEMIA
     Dosage: UNK
     Route: 065
     Dates: start: 20120524, end: 20120802
  8. MEROPENEM [Concomitant]
     Indication: PROPHYLAXIS
     Dosage: UNK
     Route: 042
     Dates: start: 20120617, end: 20120801
  9. VANCOMYCIN [Concomitant]
     Indication: PROPHYLAXIS
     Dosage: UNK
     Route: 042
     Dates: start: 20120520, end: 20120730
  10. CHLOR-TRIMETON [Concomitant]
     Indication: PROPHYLAXIS
     Dosage: UNK
     Route: 065
     Dates: start: 20120521, end: 20120802
  11. PROGRAF [Concomitant]
     Indication: PROPHYLAXIS
     Dosage: UNK
     Route: 065
     Dates: start: 20120522, end: 20120624

REACTIONS (15)
  - Acute graft versus host disease [Unknown]
  - Acute graft versus host disease in liver [Unknown]
  - Acute lymphocytic leukaemia [Fatal]
  - Melaena [Fatal]
  - Hepatic function abnormal [Fatal]
  - Pancytopenia [Fatal]
  - Asthma [Fatal]
  - Renal vessel disorder [Fatal]
  - Enterococcal sepsis [Fatal]
  - Encephalitis viral [Fatal]
  - Blood lactate dehydrogenase increased [Fatal]
  - Arthralgia [Fatal]
  - Rash [Recovered/Resolved]
  - Pyrexia [Fatal]
  - Pyrexia [Fatal]
